FAERS Safety Report 4699371-0 (Version None)
Quarter: 2005Q2

REPORT INFORMATION
  Report Type: 
  Country: None (occurrence: None)
  Receive Date: 20050622
  Receipt Date: 20050606
  Transmission Date: 20051028
  Serious: Yes (Hospitalization)
  Sender: FDA-Public Use
  Company Number: 2005-BP-09880BP

PATIENT
  Age: 28 Year
  Sex: Female

DRUGS (3)
  1. PREDNISONE TAB [Suspect]
     Indication: RENAL TRANSPLANT
     Dates: start: 20020116
  2. BELTACEPT [Suspect]
     Indication: RENAL TRANSPLANT
     Dosage: 5MG/KG EVERY 4 WEEKS IV
     Route: 042
     Dates: start: 20020114
  3. MYCOPHENOLATE MOFETIL                    (MYCOPHENILATE MOFETIL) [Suspect]
     Indication: RENAL TRANSPLANT
     Dates: start: 20020114

REACTIONS (1)
  - PYELONEPHRITIS [None]
